FAERS Safety Report 13402618 (Version 6)
Quarter: 2017Q4

REPORT INFORMATION
  Report Type: Report from Study
  Country: US (occurrence: US)
  Receive Date: 20170404
  Receipt Date: 20171005
  Transmission Date: 20180320
  Serious: Yes (Death, Hospitalization)
  Sender: FDA-Public Use
  Company Number: US-ACTELION-A-US2017-150742

PATIENT
  Age: 78 Year
  Sex: Male
  Weight: 70.3 kg

DRUGS (8)
  1. WARFARIN [Concomitant]
     Active Substance: WARFARIN
  2. OPSUMIT [Suspect]
     Active Substance: MACITENTAN
     Indication: PULMONARY HYPERTENSION
     Dosage: 10 MG, QD
     Route: 048
  3. CARAFATE [Concomitant]
     Active Substance: SUCRALFATE
     Dosage: 1 G, BID
  4. PROTONIX [Concomitant]
     Active Substance: PANTOPRAZOLE SODIUM
     Dosage: 40 MG, QD
     Dates: start: 20161224
  5. SIMVASTATIN. [Concomitant]
     Active Substance: SIMVASTATIN
     Dosage: 40 MG, QD
  6. FUROSEMIDE. [Concomitant]
     Active Substance: FUROSEMIDE
     Dosage: 40 MG, BID
     Dates: start: 20170104
  7. ADEMPAS [Concomitant]
     Active Substance: RIOCIGUAT
     Dosage: 2.5 MG, TID
     Dates: start: 2014
  8. SERTRALINE [Concomitant]
     Active Substance: SERTRALINE HYDROCHLORIDE
     Dosage: 25 MG, QD

REACTIONS (14)
  - Weight decreased [Recovering/Resolving]
  - Pneumonia [Unknown]
  - Fall [Unknown]
  - Pulmonary hypertension [Fatal]
  - Right ventricular failure [Fatal]
  - Cardiac failure congestive [Unknown]
  - Cognitive disorder [Not Recovered/Not Resolved]
  - Laboratory test abnormal [Unknown]
  - Gastrointestinal haemorrhage [Unknown]
  - Oesophageal obstruction [Recovering/Resolving]
  - Dysphagia [Recovering/Resolving]
  - Chest pain [Unknown]
  - Unevaluable event [Recovered/Resolved]
  - Fluid imbalance [Unknown]

NARRATIVE: CASE EVENT DATE: 201702
